FAERS Safety Report 9759371 (Version 1)
Quarter: 2013Q4

REPORT INFORMATION
  Report Type: Spontaneous
  Country: US (occurrence: None)
  Receive Date: 20131216
  Receipt Date: 20131216
  Transmission Date: 20140711
  Serious: Yes (Other)
  Sender: FDA-Public Use
  Company Number: 163-21880-12040123 (0)

PATIENT
  Age: 82 Year
  Sex: Male

DRUGS (1)
  1. REVLIMID (LENALIDOMIDE) (25 MILLIGRAM, CAPSULES) [Suspect]
     Indication: PLASMA CELL MYELOMA
     Dosage: 12.5 MG, 25 MG EVERY OTHER DAY CYCLE 1, PO ?15 MG, CYCLE 2 PO ?10 MG, DAYS 1-21 WITH NEUPOGEN CYCLE

REACTIONS (1)
  - Platelet count decreased [None]
